FAERS Safety Report 24995522 (Version 1)
Quarter: 2025Q1

REPORT INFORMATION
  Report Type: Spontaneous
  Country: US (occurrence: None)
  Receive Date: 20250221
  Receipt Date: 20250221
  Transmission Date: 20250409
  Serious: Yes (Other)
  Sender: FDA-CTU
  Company Number: None

PATIENT
  Age: 44 Year
  Sex: Female
  Weight: 89.1 kg

DRUGS (16)
  1. REYVOW [Suspect]
     Active Substance: LASMIDITAN
     Indication: Migraine
     Dosage: 1 TABLET DAILY ORAL
     Route: 048
     Dates: start: 20250214, end: 20250214
  2. Gabapentin, [Concomitant]
  3. ROPINIROLE [Concomitant]
     Active Substance: ROPINIROLE
  4. CLONAZEPAM [Concomitant]
     Active Substance: CLONAZEPAM
  5. Vraylar, [Concomitant]
  6. Losartan, [Concomitant]
  7. Lexapro, [Concomitant]
  8. Quilipta, [Concomitant]
  9. Propanolol, [Concomitant]
  10. Amitriptyline, [Concomitant]
  11. Prazosin, [Concomitant]
  12. Topirimate, [Concomitant]
  13. Oxcarbazepine, [Concomitant]
  14. NURTEC ODT [Concomitant]
     Active Substance: RIMEGEPANT SULFATE
  15. Magnesium, [Concomitant]
  16. PEPCID [Concomitant]
     Active Substance: FAMOTIDINE

REACTIONS (3)
  - Drug hypersensitivity [None]
  - Dyskinesia [None]
  - Formication [None]

NARRATIVE: CASE EVENT DATE: 20250214
